FAERS Safety Report 18485799 (Version 1)
Quarter: 2020Q4

REPORT INFORMATION
  Report Type: Spontaneous
  Country: FR (occurrence: FR)
  Receive Date: 20201110
  Receipt Date: 20201110
  Transmission Date: 20210114
  Serious: Yes (Hospitalization)
  Sender: FDA-Public Use
  Company Number: FR-PFIZER INC-2020430466

PATIENT
  Age: 61 Year
  Sex: Female
  Weight: 74.7 kg

DRUGS (7)
  1. LYRICA [Concomitant]
     Active Substance: PREGABALIN
     Dosage: 2 DF, DAILY (1 CAP IN THE MORNING AND 1 IN THE EVENING)
     Route: 048
  2. SEROPLEX [Suspect]
     Active Substance: ESCITALOPRAM OXALATE
     Indication: MIXED ANXIETY AND DEPRESSIVE DISORDER
     Dosage: 1 DF, 1X/DAY
     Route: 048
  3. TECFIDERA [Concomitant]
     Active Substance: DIMETHYL FUMARATE
     Indication: RELAPSING MULTIPLE SCLEROSIS
     Dosage: 2 DF, DAILY (1 CAP IN THE MORNING AND 1 IN THE EVENING)
     Route: 048
  4. IRBESARTAN. [Concomitant]
     Active Substance: IRBESARTAN
     Dosage: 150 MG
     Route: 048
  5. SOLU-MEDROL [Suspect]
     Active Substance: METHYLPREDNISOLONE SODIUM SUCCINATE
     Indication: RELAPSING MULTIPLE SCLEROSIS
     Dosage: 300 MG
     Route: 041
     Dates: start: 20200825, end: 20200829
  6. SERESTA [Concomitant]
     Active Substance: OXAZEPAM
     Dosage: 2 DF, DAILY (1 TAB IN THE MORNING AND 1 IN THE EVENING)
     Route: 048
  7. ASPIRINE PROTECT [Suspect]
     Active Substance: ASPIRIN
     Indication: PROPHYLAXIS
     Dosage: 1 DF, 1X/DAY (1 TAB AT NOON)
     Route: 048
     Dates: end: 20200830

REACTIONS (1)
  - Cerebral haemorrhage [Not Recovered/Not Resolved]

NARRATIVE: CASE EVENT DATE: 20200830
